FAERS Safety Report 7726882-3 (Version None)
Quarter: 2011Q3

REPORT INFORMATION
  Report Type: 
  Country: None (occurrence: None)
  Receive Date: 20110902
  Receipt Date: 20110822
  Transmission Date: 20111222
  Serious: Yes (Hospitalization, Other)
  Sender: FDA-Public Use
  Company Number: JP-MERCK-1108USA03263

PATIENT
  Age: 11 Year
  Sex: Male

DRUGS (35)
  1. ROCEPHIN [Suspect]
     Indication: INFECTION
     Route: 042
     Dates: start: 20100630, end: 20100707
  2. MORPHINE [Suspect]
     Route: 042
     Dates: start: 20100621, end: 20100709
  3. GLYCEOL (FRUCTOSE (+) GLYCERIN (+) SODIUM CHLORIDE) [Suspect]
     Route: 042
     Dates: start: 20100617, end: 20100618
  4. DECADRON [Suspect]
     Route: 042
     Dates: start: 20100617, end: 20100623
  5. ROCURONIUM BROMIDE [Suspect]
     Route: 042
     Dates: start: 20100617, end: 20100706
  6. MIDAZOLAM HCL [Suspect]
     Route: 042
     Dates: start: 20100617, end: 20100709
  7. DIAZEPAM [Suspect]
     Route: 048
     Dates: start: 20100622, end: 20100722
  8. DIAZEPAM [Suspect]
     Route: 048
     Dates: start: 20110702, end: 20110722
  9. LACTOBACILLUS CASEI [Suspect]
     Route: 048
     Dates: start: 20100702, end: 20100709
  10. TRICLORYL [Suspect]
     Route: 048
     Dates: start: 20100628, end: 20100705
  11. ACETAMINOPHEN [Suspect]
     Route: 054
     Dates: start: 20100630, end: 20100716
  12. GLYCERIN [Suspect]
     Indication: CONSTIPATION
     Route: 054
     Dates: start: 20100621
  13. CEFAZOLIN [Suspect]
     Route: 042
     Dates: start: 20100622, end: 20100624
  14. PHENOBARBITAL TAB [Suspect]
     Route: 048
     Dates: start: 20100622, end: 20100709
  15. MIDAZOLAM HCL [Suspect]
     Route: 042
     Dates: start: 20100621, end: 20100621
  16. LASIX [Suspect]
     Route: 048
     Dates: start: 20100626, end: 20100706
  17. EPINEPHRINE [Suspect]
     Route: 042
     Dates: start: 20100621, end: 20100621
  18. XYLOCAINE [Suspect]
     Route: 042
     Dates: start: 20100621, end: 20100709
  19. PEPCID [Suspect]
     Route: 042
     Dates: start: 20100617, end: 20100626
  20. HEPARIN SODIUM [Suspect]
     Dosage: 2 DF, UID/QD
     Route: 042
     Dates: start: 20100617
  21. ATROPINE SULFATE [Suspect]
     Route: 042
     Dates: start: 20100617, end: 20100622
  22. DIAZEPAM [Suspect]
     Route: 042
     Dates: start: 20100702, end: 20100722
  23. LANSOPRAZOLE [Suspect]
     Route: 048
     Dates: start: 20100628, end: 20100728
  24. DEPAS [Suspect]
     Route: 048
     Dates: start: 20100701, end: 20100701
  25. NICARDIPINE HCL [Suspect]
     Route: 042
     Dates: start: 20100622, end: 20100624
  26. PANTOL [Suspect]
     Route: 042
     Dates: start: 20100604, end: 20100705
  27. RISPERDAL [Suspect]
     Route: 048
     Dates: start: 20100702, end: 20100714
  28. ACETAMINOPHEN [Suspect]
     Indication: PYREXIA
     Route: 048
     Dates: start: 20100627, end: 20100716
  29. ALDACTONE [Suspect]
     Route: 048
     Dates: start: 20100626, end: 20100706
  30. LAXOBERON [Suspect]
     Route: 048
     Dates: start: 20100620, end: 20100620
  31. FENTANYL [Suspect]
     Route: 042
     Dates: start: 20100621, end: 20100708
  32. ULTIVA [Suspect]
     Route: 042
     Dates: start: 20100621, end: 20100708
  33. PEPCID [Suspect]
     Route: 048
     Dates: start: 20100626, end: 20100715
  34. CALCIUM CARBONATE [Suspect]
     Route: 042
     Dates: start: 20100621, end: 20100621
  35. PRECEDEX [Suspect]
     Route: 042
     Dates: start: 20100704, end: 20100705

REACTIONS (1)
  - DRUG RASH WITH EOSINOPHILIA AND SYSTEMIC SYMPTOMS [None]
